FAERS Safety Report 4834325-2 (Version None)
Quarter: 2005Q4

REPORT INFORMATION
  Report Type: 
  Country: None (occurrence: None)
  Receive Date: 20051122
  Receipt Date: 20050901
  Transmission Date: 20060501
  Serious: Yes (Hospitalization)
  Sender: FDA-Public Use
  Company Number: US-MERCK-0509USA00455

PATIENT
  Age: 75 Year
  Sex: Female
  Weight: 57 kg

DRUGS (11)
  1. VIOXX [Suspect]
     Indication: ARTHRITIS
     Route: 048
     Dates: start: 20000508, end: 20020509
  2. VIOXX [Suspect]
     Route: 048
     Dates: start: 20040204, end: 20041001
  3. CARISOPRODOL [Concomitant]
     Indication: MUSCLE RELAXANT THERAPY
     Route: 065
  4. METHYLPREDNISOLONE [Concomitant]
     Indication: OSTEOARTHRITIS
     Route: 065
     Dates: start: 19990506, end: 20050301
  5. TIMOLOL [Concomitant]
     Indication: GLAUCOMA
     Route: 065
     Dates: start: 20020205
  6. TIMOPTIC [Concomitant]
     Indication: GLAUCOMA
     Route: 065
     Dates: start: 19990107, end: 20020101
  7. ULTRAM [Concomitant]
     Indication: PAIN
     Route: 065
     Dates: start: 20000626, end: 20000701
  8. HYDROCODONE BITARTRATE + ACETAMINOPHEN [Concomitant]
     Indication: PAIN
     Route: 065
     Dates: start: 19990105
  9. XALATAN [Concomitant]
     Indication: GLAUCOMA
     Route: 065
  10. RELAFEN [Concomitant]
     Indication: PAIN
     Route: 065
     Dates: start: 19990505, end: 19990601
  11. DULCOLAX [Concomitant]
     Route: 065

REACTIONS (29)
  - ANAEMIA [None]
  - ANXIETY [None]
  - BRONCHITIS [None]
  - CEREBRAL INFARCTION [None]
  - CHRONIC OBSTRUCTIVE PULMONARY DISEASE [None]
  - CONVULSION [None]
  - DEHYDRATION [None]
  - DEMENTIA ALZHEIMER'S TYPE [None]
  - DEPRESSION [None]
  - DRUG HYPERSENSITIVITY [None]
  - DRUG INEFFECTIVE [None]
  - DYSPNOEA [None]
  - EPIGASTRIC DISCOMFORT [None]
  - EYE DISORDER [None]
  - FUNGAL INFECTION [None]
  - GASTROOESOPHAGEAL REFLUX DISEASE [None]
  - HALLUCINATION [None]
  - HERPES ZOSTER [None]
  - HYPERTENSION [None]
  - INCONTINENCE [None]
  - INSOMNIA [None]
  - NASAL CONGESTION [None]
  - NAUSEA [None]
  - NEUROPATHY [None]
  - OEDEMA [None]
  - OSTEOPOROSIS [None]
  - PERIPHERAL VASCULAR DISORDER [None]
  - URINARY TRACT INFECTION [None]
  - VOMITING [None]
